FAERS Safety Report 6656771-7 (Version None)
Quarter: 2010Q1

REPORT INFORMATION
  Report Type: 
  Country: None (occurrence: None)
  Receive Date: 20100329
  Receipt Date: 20100322
  Transmission Date: 20100710
  Serious: Yes (Life-Threatening, Hospitalization, Disabling, Other)
  Sender: FDA-Public Use
  Company Number: US-GILEAD-2010-0027369

PATIENT
  Age: 49 Year
  Sex: Male
  Weight: 59.928 kg

DRUGS (2)
  1. HEPSERA [Suspect]
     Indication: HEPATITIS B
     Route: 048
     Dates: start: 20070315, end: 20091016
  2. VIREAD [Suspect]
     Indication: HIV INFECTION
     Route: 048
     Dates: start: 20060615, end: 20091020

REACTIONS (7)
  - AMNESIA [None]
  - DRUG ADMINISTRATION ERROR [None]
  - FANCONI SYNDROME ACQUIRED [None]
  - HYPOKALAEMIA [None]
  - HYPOPHOSPHATAEMIA [None]
  - MYALGIA [None]
  - OSTEOPOROSIS [None]
